FAERS Safety Report 5026366-X (Version None)
Quarter: 2006Q2

REPORT INFORMATION
  Report Type: 
  Country: None (occurrence: None)
  Receive Date: 20060615
  Receipt Date: 20060328
  Transmission Date: 20061013
  Serious: Yes (Hospitalization)
  Sender: FDA-Public Use
  Company Number: HQWYE567429MAR06

PATIENT
  Sex: Female

DRUGS (8)
  1. ENBREL [Suspect]
     Indication: RHEUMATOID ARTHRITIS
     Route: 058
     Dates: start: 20060202, end: 20060530
  2. PERSANTIN [Concomitant]
  3. LANSOPRAZOLE [Concomitant]
     Dates: start: 20051011, end: 20060324
  4. PARIET [Concomitant]
     Dates: start: 20060325
  5. ENALAPRIL MALEATE [Concomitant]
     Dates: start: 20051109, end: 20060313
  6. LASIX [Concomitant]
     Dates: start: 20051012
  7. ALLOPURINOL [Concomitant]
     Dates: start: 20060320
  8. UNSPECIFIED MEDICATION [Concomitant]

REACTIONS (7)
  - AORTIC CALCIFICATION [None]
  - GLOMERULONEPHRITIS MEMBRANOUS [None]
  - HYPOALBUMINAEMIA [None]
  - INTERVERTEBRAL DISCITIS [None]
  - PNEUMONIA STAPHYLOCOCCAL [None]
  - STAPHYLOCOCCAL SEPSIS [None]
  - STOMATITIS [None]
